FAERS Safety Report 16004800 (Version 1)
Quarter: 2019Q1

REPORT INFORMATION
  Report Type: Spontaneous
  Country: US (occurrence: US)
  Receive Date: 20190226
  Receipt Date: 20190226
  Transmission Date: 20190418
  Serious: Yes (Disabling)
  Sender: FDA-Public Use
  Company Number: None

PATIENT
  Age: 52 Year
  Sex: Female
  Weight: 75.6 kg

DRUGS (1)
  1. TRINTELLIX [Suspect]
     Active Substance: VORTIOXETINE HYDROBROMIDE
     Indication: MAJOR DEPRESSION
     Dosage: ?          QUANTITY:1 TABLET(S);?
     Route: 048
     Dates: start: 20190122, end: 20190220

REACTIONS (17)
  - Dizziness [None]
  - Nervousness [None]
  - Sleep disorder [None]
  - Hypersomnia [None]
  - Malaise [None]
  - Nausea [None]
  - Haemorrhage [None]
  - Memory impairment [None]
  - Agitation [None]
  - Contraindicated product administered [None]
  - Victim of crime [None]
  - Victim of abuse [None]
  - Vomiting projectile [None]
  - Thirst [None]
  - Pruritus [None]
  - Dissociation [None]
  - Dry mouth [None]

NARRATIVE: CASE EVENT DATE: 20190220
